FAERS Safety Report 9361076 (Version 1)
Quarter: 2013Q2

REPORT INFORMATION
  Report Type: Report from Study
  Country: US (occurrence: US)
  Receive Date: 20130621
  Receipt Date: 20130621
  Transmission Date: 20140414
  Serious: Yes (Other)
  Sender: FDA-Public Use
  Company Number: US-ABBOTT-13P-163-1103935-00

PATIENT
  Age: 35 Year
  Sex: Female
  Weight: 63.56 kg

DRUGS (6)
  1. HUMIRA [Suspect]
     Indication: CROHN^S DISEASE
     Dosage: 160 MG LOADING DOSE
     Dates: start: 201002, end: 201002
  2. HUMIRA [Suspect]
     Dosage: 80 MG LOADING DOSE
     Dates: start: 201002, end: 201002
  3. HUMIRA [Suspect]
     Dates: start: 201003, end: 20121108
  4. ACCUTANE [Suspect]
     Indication: PRODUCT USED FOR UNKNOWN INDICATION
  5. HYOSCYAMINE [Concomitant]
     Indication: CROHN^S DISEASE
  6. PREDNISONE [Concomitant]
     Indication: CROHN^S DISEASE

REACTIONS (3)
  - Vision blurred [Not Recovered/Not Resolved]
  - Multiple sclerosis [Not Recovered/Not Resolved]
  - Visual impairment [Not Recovered/Not Resolved]
